FAERS Safety Report 10412256 (Version 1)
Quarter: 2014Q3

REPORT INFORMATION
  Report Type: Spontaneous
  Country: US (occurrence: None)
  Receive Date: 20140826
  Receipt Date: 20140826
  Transmission Date: 20150326
  Serious: Yes (Hospitalization)
  Sender: FDA-Public Use
  Company Number: None

PATIENT
  Age: 57 Year
  Sex: Male
  Weight: 74.3 kg

DRUGS (3)
  1. LENALIDOMIDE 25 MG PO [Suspect]
     Active Substance: LENALIDOMIDE
     Dosage: LEN: D 01-21
     Route: 048
     Dates: start: 20130909, end: 20140821
  2. DEXAMETHASONE 40 MG PO [Suspect]
     Active Substance: DEXAMETHASONE
     Dosage: DEX: D1,8,15
     Dates: start: 20130909, end: 20140921
  3. PANOBINOSTAT 20 MG PO [Suspect]
     Active Substance: PANOBINOSTAT
     Indication: PLASMA CELL MYELOMA
     Dosage: PO DAYS 1, 3, 5, 15, 17, 19
     Route: 048
     Dates: start: 20130909, end: 20140822

REACTIONS (1)
  - Chest pain [None]

NARRATIVE: CASE EVENT DATE: 20140822
